FAERS Safety Report 7777864-7 (Version None)
Quarter: 2011Q3

REPORT INFORMATION
  Report Type: 
  Country: None (occurrence: None)
  Receive Date: 20110926
  Receipt Date: 20110916
  Transmission Date: 20111222
  Serious: No
  Sender: FDA-Public Use
  Company Number: US-BIOGENIDEC-2011BI035832

PATIENT
  Age: 45 Year
  Sex: Female

DRUGS (4)
  1. TYSABRI [Suspect]
     Route: 042
     Dates: start: 20070628, end: 20080104
  2. TYSABRI [Suspect]
     Indication: MULTIPLE SCLEROSIS
     Route: 042
     Dates: start: 20110907
  3. TYSABRI [Suspect]
     Route: 042
     Dates: start: 20090521, end: 20101118
  4. TYSABRI [Suspect]
     Route: 042
     Dates: start: 20080418, end: 20090109

REACTIONS (1)
  - HEADACHE [None]
